FAERS Safety Report 9501430 (Version 1)
Quarter: 2013Q3

REPORT INFORMATION
  Report Type: Spontaneous
  Country: US (occurrence: US)
  Receive Date: 20130905
  Receipt Date: 20130905
  Transmission Date: 20140515
  Serious: Yes (Other)
  Sender: FDA-Public Use
  Company Number: US-GLAXOSMITHKLINE-A1040121A

PATIENT
  Sex: Male

DRUGS (3)
  1. LAMICTAL [Suspect]
     Indication: CONVULSION
     Dosage: 900MG PER DAY
     Route: 065
     Dates: start: 201109
  2. DEPAKOTE [Suspect]
     Indication: CONVULSION
  3. SEIZURE MEDICATION [Suspect]
     Indication: CONVULSION

REACTIONS (9)
  - Convulsion [Unknown]
  - Abasia [Unknown]
  - Dysstasia [Unknown]
  - Hyperhidrosis [Unknown]
  - Dizziness [Unknown]
  - Vomiting [Unknown]
  - Fall [Unknown]
  - Dysarthria [Unknown]
  - Mouth haemorrhage [Unknown]
